FAERS Safety Report 5528674-2 (Version None)
Quarter: 2007Q4

REPORT INFORMATION
  Report Type: 
  Country: None (occurrence: None)
  Receive Date: 20071129
  Receipt Date: 20071115
  Transmission Date: 20080405
  Serious: Yes (Hospitalization)
  Sender: FDA-Public Use
  Company Number: PHBS2007JP18622

PATIENT
  Age: 66 Year
  Sex: Female

DRUGS (3)
  1. NEORAL [Suspect]
     Indication: PYODERMA GANGRENOSUM
     Route: 065
     Dates: start: 20060601
  2. NEORAL [Suspect]
     Dosage: UNK, UNK
     Route: 065
  3. STEROIDS NOS [Concomitant]
     Indication: PYODERMA GANGRENOSUM
     Route: 065

REACTIONS (4)
  - CONDITION AGGRAVATED [None]
  - CYTOMEGALOVIRUS ANTIGEN POSITIVE [None]
  - SKIN ULCER [None]
  - THROMBOCYTOPENIA [None]
